FAERS Safety Report 5787308-2 (Version None)
Quarter: 2008Q2

REPORT INFORMATION
  Report Type: 
  Country: None (occurrence: None)
  Receive Date: 20080625
  Receipt Date: 20070913
  Transmission Date: 20081010
  Serious: No
  Sender: FDA-Public Use
  Company Number: US-ASTRAZENECA-2007UW21739

PATIENT
  Age: 76 Year
  Sex: Female

DRUGS (7)
  1. PULMICORT RESPULES [Suspect]
     Indication: CHRONIC OBSTRUCTIVE PULMONARY DISEASE
     Route: 055
  2. 24 HOUR OXYGEN [Concomitant]
  3. PREDNISONE [Concomitant]
  4. FUROSEMIDE [Concomitant]
  5. ALBUTEROL [Concomitant]
  6. XOPENEX [Concomitant]
  7. BROVANA [Concomitant]

REACTIONS (1)
  - DYSPNOEA [None]
